FAERS Safety Report 6886887-1 (Version None)
Quarter: 2010Q3

REPORT INFORMATION
  Report Type: 
  Country: None (occurrence: None)
  Receive Date: 20100730
  Receipt Date: 20100721
  Transmission Date: 20110219
  Serious: Yes (Hospitalization, Other)
  Sender: FDA-Public Use
  Company Number: US-JNJFOC-20100706894

PATIENT
  Age: 71 Year
  Sex: Male

DRUGS (2)
  1. REMICADE [Suspect]
     Indication: COLITIS ULCERATIVE
     Route: 042
  2. STEROIDS NOS [Concomitant]
     Indication: COLITIS ULCERATIVE
     Dosage: ^HIGH DOSE^
     Route: 042

REACTIONS (3)
  - COLECTOMY [None]
  - GASTROINTESTINAL INFECTION [None]
  - PNEUMONIA [None]
